FAERS Safety Report 7043477-8 (Version None)
Quarter: 2010Q4

REPORT INFORMATION
  Report Type: 
  Country: None (occurrence: None)
  Receive Date: 20101013
  Receipt Date: 20101009
  Transmission Date: 20110411
  Serious: No
  Sender: FDA-Public Use
  Company Number: US-B.I. PHARMACEUTICALS,INC./RIDGEFIELD-2010-BP-11488BP

PATIENT
  Age: 41 Year
  Sex: Female

DRUGS (2)
  1. ZANTAC 150 [Suspect]
     Indication: DYSPEPSIA
     Dosage: 150 MG
     Route: 048
     Dates: start: 20101009
  2. ALLEGRA [Suspect]
     Indication: MULTIPLE ALLERGIES

REACTIONS (3)
  - CHEST PAIN [None]
  - GLOSSODYNIA [None]
  - URTICARIA [None]
